FAERS Safety Report 12390137 (Version 2)
Quarter: 2016Q3

REPORT INFORMATION
  Report Type: Spontaneous
  Country: US (occurrence: US)
  Receive Date: 20160520
  Receipt Date: 20160804
  Transmission Date: 20161109
  Serious: No
  Sender: FDA-Public Use
  Company Number: US-LEO PHARMA-241895

PATIENT
  Age: 69 Year
  Sex: Female

DRUGS (1)
  1. PICATO [Suspect]
     Active Substance: INGENOL MEBUTATE
     Indication: ACTINIC KERATOSIS
     Route: 061
     Dates: start: 20160510, end: 20160512

REACTIONS (9)
  - Application site erythema [Recovered/Resolved]
  - Application site exfoliation [Recovered/Resolved]
  - Sleep disorder [Recovered/Resolved]
  - Application site discomfort [Recovered/Resolved]
  - Application site exfoliation [Recovered/Resolved]
  - Application site pain [Recovered/Resolved]
  - Application site swelling [Recovered/Resolved]
  - Drug administered at inappropriate site [Unknown]
  - Application site dryness [Recovered/Resolved]

NARRATIVE: CASE EVENT DATE: 20160510
